FAERS Safety Report 5007817-3 (Version None)
Quarter: 2006Q2

REPORT INFORMATION
  Report Type: 
  Country: None (occurrence: None)
  Receive Date: 20060518
  Receipt Date: 20060510
  Transmission Date: 20061013
  Serious: Yes (Hospitalization)
  Sender: FDA-Public Use
  Company Number: 2005-01331

PATIENT
  Age: 44 Year
  Sex: Female
  Weight: 60.8 kg

DRUGS (4)
  1. VELCADE [Suspect]
     Indication: MULTIPLE MYELOMA
     Dosage: 1.30 MG/M2, INTRAVENOUS
     Route: 042
     Dates: start: 20050524
  2. GEE'S LINCTUS (SQUILL OXYMEL, OPIUM TINCTURE, CAMPHORATED, TOLU SYRUP) [Concomitant]
  3. ACYCLOVIR [Concomitant]
  4. PLATELETS [Concomitant]

REACTIONS (20)
  - ACUTE FEBRILE NEUTROPHILIC DERMATOSIS [None]
  - BLOOD CREATINE INCREASED [None]
  - BLOOD POTASSIUM DECREASED [None]
  - BLOOD UREA INCREASED [None]
  - COUGH [None]
  - EMOTIONAL DISTRESS [None]
  - ERYTHEMA MULTIFORME [None]
  - HAEMATOCRIT DECREASED [None]
  - HAEMOGLOBIN DECREASED [None]
  - HAEMOPTYSIS [None]
  - HERPES SIMPLEX [None]
  - LOWER RESPIRATORY TRACT INFECTION [None]
  - MOUTH ULCERATION [None]
  - NEUTROPHIL COUNT DECREASED [None]
  - NEUTROPHIL PERCENTAGE DECREASED [None]
  - PALLOR [None]
  - PLATELET COUNT DECREASED [None]
  - RED BLOOD CELL COUNT DECREASED [None]
  - VENOUS PRESSURE JUGULAR DECREASED [None]
  - WHITE BLOOD CELL COUNT DECREASED [None]
